FAERS Safety Report 4840030-9 (Version None)
Quarter: 2005Q4

REPORT INFORMATION
  Report Type: 
  Country: None (occurrence: None)
  Receive Date: 20051125
  Receipt Date: 20051114
  Transmission Date: 20060501
  Serious: Yes (Death)
  Sender: FDA-Public Use
  Company Number: 05H-144-0303691-00

PATIENT
  Age: 4 Year
  Sex: Female

DRUGS (3)
  1. NITROPRESS [Suspect]
     Indication: CONGESTIVE CARDIOMYOPATHY
     Dosage: SEE IMAGE
  2. DOPAMINE HCL [Concomitant]
  3. MILRINONE (MILRINONE) [Concomitant]

REACTIONS (4)
  - BRAIN DEATH [None]
  - CARBOXYHAEMOGLOBINAEMIA [None]
  - INCORRECT DOSE ADMINISTERED [None]
  - MEDICATION ERROR [None]
